FAERS Safety Report 21328790 (Version 4)
Quarter: 2023Q1

REPORT INFORMATION
  Report Type: Report from Study
  Country: CZ (occurrence: CZ)
  Receive Date: 20220913
  Receipt Date: 20230105
  Transmission Date: 20230418
  Serious: Yes (Hospitalization)
  Sender: FDA-Public Use
  Company Number: CZ-UCBSA-2022053779

PATIENT
  Sex: Male
  Weight: 85 kg

DRUGS (2)
  1. BRIVARACETAM [Suspect]
     Active Substance: BRIVARACETAM
     Indication: Epilepsy
     Dosage: 100 MILLIGRAM, 2X/DAY (BID)
     Route: 048
     Dates: start: 20220505, end: 20220916
  2. TOPAMAX [Concomitant]
     Active Substance: TOPIRAMATE
     Indication: Epilepsy
     Dosage: UNK

REACTIONS (7)
  - Brain contusion [Recovered/Resolved]
  - Subdural haematoma [Recovered/Resolved]
  - Subarachnoid haematoma [Recovered/Resolved]
  - Skull fractured base [Recovered/Resolved]
  - Fall [Recovered/Resolved with Sequelae]
  - Partial seizures with secondary generalisation [Recovered/Resolved with Sequelae]
  - Drug ineffective [Unknown]

NARRATIVE: CASE EVENT DATE: 20220830
